FAERS Safety Report 4403186-8 (Version None)
Quarter: 2004Q3

REPORT INFORMATION
  Report Type: 
  Country: None (occurrence: None)
  Receive Date: 20040721
  Receipt Date: 20040309
  Transmission Date: 20050211
  Serious: No
  Sender: FDA-Public Use
  Company Number: US-GLAXOSMITHKLINE-A0501950A

PATIENT
  Age: 54 Year
  Sex: Female

DRUGS (7)
  1. IMITREX [Suspect]
     Indication: MIGRAINE
     Dosage: 25MG AS REQUIRED
     Route: 048
  2. ZOMIG [Concomitant]
  3. THYROID REPLACEMENT [Concomitant]
  4. TOPAMAX [Concomitant]
  5. PAXIL [Concomitant]
  6. XANAX [Concomitant]
  7. PREMPRO [Concomitant]

REACTIONS (1)
  - DRUG INEFFECTIVE [None]
